FAERS Safety Report 7273736-5 (Version None)
Quarter: 2010Q4

REPORT INFORMATION
  Report Type: 
  Country: None (occurrence: None)
  Receive Date: 20101201
  Receipt Date: 20100803
  Transmission Date: 20110411
  Serious: Yes (Other)
  Sender: FDA-Public Use
  Company Number: 311245

PATIENT
  Age: 66 Year
  Sex: Female
  Weight: 89.8 kg

DRUGS (2)
  1. NOVOLOG [Suspect]
     Indication: TYPE 2 DIABETES MELLITUS
     Dosage: SUBCUTAN.-PUMP, SUBCUTANEOUS
     Route: 058
     Dates: start: 20091201, end: 20100601
  2. NOVOLOG [Suspect]
     Indication: TYPE 2 DIABETES MELLITUS
     Dosage: SUBCUTAN.-PUMP, SUBCUTANEOUS
     Route: 058
     Dates: start: 20100601

REACTIONS (2)
  - BLOOD GLUCOSE DECREASED [None]
  - WEIGHT INCREASED [None]
